FAERS Safety Report 8879771 (Version 1)
Quarter: 2012Q4

REPORT INFORMATION
  Report Type: 
  Country: BR (occurrence: BR)
  Receive Date: 20121031
  Receipt Date: 20121031
  Transmission Date: 20130627
  Serious: Yes (Death, Hospitalization)
  Sender: FDA-Public Use
  Company Number: BR-009507513-1210BRA014077

PATIENT
  Sex: Female
  Weight: 52 kg

DRUGS (3)
  1. JANUMET [Suspect]
     Indication: DIABETES MELLITUS
     Dosage: UNK
     Route: 048
     Dates: start: 2012
  2. SIMVASTATIN [Suspect]
     Route: 048
  3. AAS [Concomitant]
     Route: 048

REACTIONS (4)
  - Organ failure [Fatal]
  - Nephrolithiasis [Unknown]
  - Haemodialysis [Unknown]
  - Asthenia [Fatal]
